FAERS Safety Report 16520067 (Version 1)
Quarter: 2019Q3

REPORT INFORMATION
  Report Type: Spontaneous
  Country: RU (occurrence: RU)
  Receive Date: 20190702
  Receipt Date: 20190702
  Transmission Date: 20191004
  Serious: Yes (Other)
  Sender: FDA-Public Use
  Company Number: PHHY2019RU151709

PATIENT

DRUGS (1)
  1. NILOTINIB [Suspect]
     Active Substance: NILOTINIB
     Indication: CHRONIC MYELOID LEUKAEMIA
     Dosage: 800 MG, UNK,(800 MG-400 MG)
     Route: 065
     Dates: start: 201209, end: 201411

REACTIONS (3)
  - Myocardial ischaemia [Unknown]
  - Cardiotoxicity [Unknown]
  - Cytogenetic analysis abnormal [Unknown]
